FAERS Safety Report 23637025 (Version 2)
Quarter: 2024Q1

REPORT INFORMATION
  Report Type: Spontaneous
  Country: PT (occurrence: PT)
  Receive Date: 20240315
  Receipt Date: 20240320
  Transmission Date: 20240410
  Serious: Yes (Life-Threatening, Hospitalization, Other)
  Sender: FDA-Public Use
  Company Number: PT-MYLANLABS-2014M1013893

PATIENT
  Age: 8 Year
  Sex: Female

DRUGS (3)
  1. CARBAMAZEPINE [Suspect]
     Active Substance: CARBAMAZEPINE
     Indication: Epilepsy
     Dosage: UNK
     Route: 048
  2. AMOXICILLIN\CLAVULANIC ACID [Suspect]
     Active Substance: AMOXICILLIN\CLAVULANIC ACID
     Indication: Otitis media
     Dosage: UNK
     Route: 065
  3. IBUPROFEN [Suspect]
     Active Substance: IBUPROFEN
     Indication: Product used for unknown indication
     Dosage: UNK
     Route: 065

REACTIONS (17)
  - Ear infection [Unknown]
  - Peripheral swelling [Recovering/Resolving]
  - Hepatic enzyme increased [Unknown]
  - Face oedema [Recovering/Resolving]
  - Drug reaction with eosinophilia and systemic symptoms [Recovering/Resolving]
  - Cheilitis [Recovering/Resolving]
  - Odynophagia [Recovering/Resolving]
  - Ear pain [Recovering/Resolving]
  - Splenomegaly [Recovering/Resolving]
  - Oedema peripheral [Recovering/Resolving]
  - Rash pruritic [Recovering/Resolving]
  - Rash macular [Recovering/Resolving]
  - Pyrexia [Recovering/Resolving]
  - Dry mouth [Recovering/Resolving]
  - Anaemia [Recovering/Resolving]
  - Eosinophilia [Recovering/Resolving]
  - Lymphadenopathy [Recovering/Resolving]
